FAERS Safety Report 6831250-2 (Version None)
Quarter: 2010Q3

REPORT INFORMATION
  Report Type: 
  Country: None (occurrence: None)
  Receive Date: 20100712
  Receipt Date: 20100705
  Transmission Date: 20110219
  Serious: Yes (Life-Threatening)
  Sender: FDA-Public Use
  Company Number: IT-TEVA-240719ISR

PATIENT
  Sex: Female

DRUGS (3)
  1. FLUOROURACIL [Suspect]
     Indication: GASTRIC CANCER
     Route: 042
     Dates: start: 20090918, end: 20091127
  2. DOCETAXEL [Concomitant]
     Indication: GASTRIC CANCER
     Route: 042
     Dates: start: 20090918, end: 20091127
  3. CISPLATIN [Concomitant]
     Indication: GASTRIC CANCER
     Route: 042
     Dates: start: 20090918, end: 20091127

REACTIONS (3)
  - HYPERTENSIVE CRISIS [None]
  - SINUS TACHYCARDIA [None]
  - VOMITING [None]
